FAERS Safety Report 14094973 (Version 1)
Quarter: 2017Q4

REPORT INFORMATION
  Report Type: Spontaneous
  Country: PT (occurrence: PT)
  Receive Date: 20171016
  Receipt Date: 20171016
  Transmission Date: 20180321
  Serious: Yes (Other)
  Sender: FDA-Public Use
  Company Number: PT-MYLANLABS-2017M1063229

PATIENT
  Age: 10 Year
  Sex: Male

DRUGS (1)
  1. BUDESONIDE MYLAN (GENERIC PRODUCT - MANUFACTURER: MYLAN) [Suspect]
     Active Substance: BUDESONIDE
     Indication: COUGH
     Route: 055
     Dates: start: 201602

REACTIONS (3)
  - Gingival bleeding [Recovered/Resolved]
  - Angioedema [Recovered/Resolved]
  - Lip oedema [Recovered/Resolved]

NARRATIVE: CASE EVENT DATE: 201602
